FAERS Safety Report 9661566 (Version 2)
Quarter: 2013Q4

REPORT INFORMATION
  Report Type: Spontaneous
  Country: US (occurrence: US)
  Receive Date: 20131031
  Receipt Date: 20131031
  Transmission Date: 20140711
  Serious: No
  Sender: FDA-Public Use
  Company Number: US-PURDUE-USA-2010-0054176

PATIENT
  Sex: Female

DRUGS (5)
  1. OXYCONTIN (NDA 22-272) [Suspect]
     Indication: NEOPLASM MALIGNANT
     Dosage: 40 MG, AM
     Route: 048
     Dates: start: 20101102
  2. OXYCONTIN (NDA 22-272) [Suspect]
     Indication: BACK PAIN
     Dosage: 40 MG, PM
     Route: 048
     Dates: start: 20101102
  3. OXYCONTIN (NDA 22-272) [Suspect]
     Dosage: 20 MG, AFTERNOON
     Route: 048
     Dates: start: 20101102
  4. COUMADIN                           /00014802/ [Concomitant]
     Indication: HYPERTENSION
  5. PERCOCET                           /00867901/ [Concomitant]
     Indication: BREAKTHROUGH PAIN
     Route: 048

REACTIONS (3)
  - Abdominal pain upper [Not Recovered/Not Resolved]
  - Headache [Not Recovered/Not Resolved]
  - Therapeutic response delayed [Not Recovered/Not Resolved]
